FAERS Safety Report 6978189-X (Version None)
Quarter: 2010Q3

REPORT INFORMATION
  Report Type: 
  Country: None (occurrence: None)
  Receive Date: 20100913
  Receipt Date: 20100830
  Transmission Date: 20110219
  Serious: Yes (Hospitalization, Other)
  Sender: FDA-Public Use
  Company Number: US-BAYER-201017826NA

PATIENT
  Age: 21 Year
  Sex: Female

DRUGS (4)
  1. BETASERON [Suspect]
     Indication: RELAPSING-REMITTING MULTIPLE SCLEROSIS
     Route: 058
     Dates: start: 20080711, end: 20081001
  2. BETASERON [Suspect]
     Dosage: TOTAL DAILY DOSE: 8 MIU
     Route: 058
     Dates: start: 20081101, end: 20100318
  3. SOLU-MEDROL [Suspect]
     Indication: MULTIPLE SCLEROSIS RELAPSE
     Route: 042
  4. SOLU-MEDROL [Suspect]
     Route: 042
     Dates: end: 20100331

REACTIONS (17)
  - ABDOMINAL DISCOMFORT [None]
  - ABDOMINAL PAIN [None]
  - BLOOD URINE PRESENT [None]
  - CHOLECYSTECTOMY [None]
  - DECREASED APPETITE [None]
  - DIPLOPIA [None]
  - DISCOMFORT [None]
  - HEPATIC ENZYME INCREASED [None]
  - HEPATIC STEATOSIS [None]
  - HYPOAESTHESIA [None]
  - INFLAMMATION [None]
  - LABORATORY TEST ABNORMAL [None]
  - MULTIPLE SCLEROSIS RELAPSE [None]
  - MYALGIA [None]
  - NEUTRALISING ANTIBODIES POSITIVE [None]
  - VERTIGO [None]
  - WEIGHT DECREASED [None]
